FAERS Safety Report 7365519-2 (Version None)
Quarter: 2011Q1

REPORT INFORMATION
  Report Type: 
  Country: None (occurrence: None)
  Receive Date: 20110322
  Receipt Date: 20110125
  Transmission Date: 20110831
  Serious: Yes (Other)
  Sender: FDA-Public Use
  Company Number: US-BAYER-2011-005441

PATIENT
  Sex: Female
  Weight: 3 kg

DRUGS (30)
  1. LEVOTHYROXINE SODIUM [Concomitant]
     Indication: HYPOTHYROIDISM
     Dosage: 0.25 MG, QD
     Dates: start: 20060101
  2. ASPIRIN [Concomitant]
     Dosage: 40 MG, QD
     Dates: start: 20060101
  3. TRASYLOL [Suspect]
     Indication: UNIVENTRICULAR HEART
     Dosage: 15 ML/HR
     Route: 041
     Dates: start: 20060217, end: 20060217
  4. RED BLOOD CELLS [Concomitant]
     Indication: TRICUSPID VALVE REPAIR
     Dosage: 1 UNIT
     Dates: start: 20060217
  5. RED BLOOD CELLS [Concomitant]
  6. ZANTAC [Concomitant]
     Dosage: 7.5 MG EVERY 12 HRS
     Dates: start: 20060101
  7. METOCLOPRAMIDE [Concomitant]
     Indication: GASTROOESOPHAGEAL REFLUX DISEASE
     Dosage: 1 ML EVERY 12 HRS
     Dates: start: 20060101
  8. ASPIRIN [Concomitant]
     Dosage: 20 MG, QD
     Dates: start: 20060201
  9. MILRINONE [Concomitant]
     Dosage: 0.375 MCG/KG
     Route: 042
     Dates: start: 20060217
  10. PROTAMINE SULFATE [Concomitant]
     Dosage: 45 MG, UNK
     Route: 042
     Dates: start: 20060628, end: 20060628
  11. LANOXIN [Concomitant]
     Dosage: 15 MCG EVERY 12 HRS
     Dates: start: 20060201
  12. PROTAMINE SULFATE [Concomitant]
     Dosage: 36 MG, UNK
     Route: 042
     Dates: start: 20060217, end: 20060217
  13. TRASYLOL [Suspect]
     Indication: TRICUSPID VALVE INCOMPETENCE
     Dosage: 1 ML, UNK
     Route: 042
     Dates: start: 20060217, end: 20060217
  14. RED BLOOD CELLS [Concomitant]
     Dosage: 1 UNIT
     Dates: start: 20060623
  15. REGLAN [Concomitant]
     Indication: GASTROOESOPHAGEAL REFLUX DISEASE
     Dosage: 0.3 MG EVERY 12 HRS
     Dates: start: 20060101
  16. EPINEPHRINE [Concomitant]
     Dosage: 0.02 MCG/KG
     Route: 042
     Dates: start: 20060217, end: 20060217
  17. EPINEPHRINE [Concomitant]
     Dosage: 0.02 MCG/KG/MIN TO 0.06 MCG/KG/MIN
     Route: 042
     Dates: start: 20060628
  18. MILRINONE [Concomitant]
     Dosage: 0.375 MCG/KG TO 0.5 MCG/MIN
     Route: 042
     Dates: start: 20060628
  19. RED BLOOD CELLS [Concomitant]
     Dosage: 1 UNIT
     Dates: start: 20060218
  20. LASIX [Concomitant]
     Indication: CARDIAC FAILURE CONGESTIVE
     Dosage: 3 MG EVERY 12 HRS
     Dates: start: 20051201
  21. ZANTAC [Concomitant]
     Indication: GASTROOESOPHAGEAL REFLUX DISEASE
     Dosage: 1 ML EVERY 12 HRS
     Dates: start: 20060101
  22. SODIUM CITRATE [Concomitant]
     Indication: RENAL FAILURE
     Dosage: 3 ML, UNK
     Dates: start: 20060101
  23. ISO [Concomitant]
     Dosage: 0.8 UNK, UNK
     Route: 042
     Dates: start: 20060217
  24. PLATELETS [Concomitant]
     Dosage: 55 ML
     Dates: start: 20060217
  25. TRASYLOL [Suspect]
     Indication: SYSTEMIC-PULMONARY ARTERY SHUNT
     Dosage: 60 MG,LOADING DOSE
     Route: 042
     Dates: start: 20060628, end: 20060628
  26. SYNTHROID [Concomitant]
     Indication: HYPOTHYROIDISM
     Dosage: 0.25 MCG DAILY
     Dates: start: 20060101
  27. CAPTOPRIL [Concomitant]
     Indication: HYPERTENSION
     Dosage: 1 MG EVERY 8 HRS
     Dates: start: 20060201
  28. HEPARIN [Concomitant]
     Dosage: 3000 UNITS
     Route: 042
     Dates: start: 20060628, end: 20060628
  29. PLASMA [Concomitant]
     Dosage: 35 ML
     Dates: start: 20060217
  30. BICITRA [Concomitant]
     Indication: RENAL FAILURE
     Dosage: 3 ML EVERY 12 HRS
     Dates: start: 20060101

REACTIONS (9)
  - UNEVALUABLE EVENT [None]
  - RENAL INJURY [None]
  - RENAL FAILURE [None]
  - PAIN [None]
  - MULTI-ORGAN FAILURE [None]
  - FEAR [None]
  - INJURY [None]
  - ANXIETY [None]
  - DEPRESSION [None]
